FAERS Safety Report 18687014 (Version 3)
Quarter: 2021Q1

REPORT INFORMATION
  Report Type: Spontaneous
  Country: IT (occurrence: IT)
  Receive Date: 20201231
  Receipt Date: 20210218
  Transmission Date: 20210419
  Serious: Yes (Hospitalization)
  Sender: FDA-Public Use
  Company Number: IT-ROCHE-2740782

PATIENT
  Age: 65 Year
  Sex: Male

DRUGS (8)
  1. ZYLORIC [Suspect]
     Active Substance: ALLOPURINOL
     Indication: BLOOD URIC ACID INCREASED
     Route: 048
     Dates: start: 20201116, end: 20201204
  2. DELTACORTENE [Concomitant]
     Active Substance: PREDNISONE
  3. CARDIOASPIRIN [Concomitant]
     Active Substance: ASPIRIN
  4. ACICLOVIR [Concomitant]
     Active Substance: ACYCLOVIR
  5. BACTRIM [Suspect]
     Active Substance: SULFAMETHOXAZOLE\TRIMETHOPRIM
     Indication: PROPHYLAXIS
     Route: 048
     Dates: start: 20201116, end: 20201204
  6. RIXATHON [Suspect]
     Active Substance: RITUXIMAB
     Indication: NON-HODGKIN^S LYMPHOMA
     Route: 042
     Dates: start: 20201116, end: 20201116
  7. BENDAMUSTINA [Suspect]
     Active Substance: BENDAMUSTINE
     Indication: NON-HODGKIN^S LYMPHOMA
     Route: 042
     Dates: start: 20201116, end: 20201117
  8. ADENURIC [Suspect]
     Active Substance: FEBUXOSTAT
     Indication: BLOOD URIC ACID INCREASED
     Route: 048
     Dates: start: 20201116, end: 20201204

REACTIONS (4)
  - Skin exfoliation [Recovered/Resolved]
  - Genital erythema [Recovered/Resolved]
  - Stomatitis [Recovered/Resolved]
  - Stevens-Johnson syndrome [Recovered/Resolved]

NARRATIVE: CASE EVENT DATE: 20201204
